FAERS Safety Report 18718291 (Version 1)
Quarter: 2021Q1

REPORT INFORMATION
  Report Type: Spontaneous
  Country: US (occurrence: US)
  Receive Date: 20210108
  Receipt Date: 20210108
  Transmission Date: 20210419
  Serious: Yes (Hospitalization)
  Sender: FDA-Public Use
  Company Number: US-AMNEAL PHARMACEUTICALS-2020-AMRX-01563

PATIENT
  Age: 43 Year
  Sex: Female
  Weight: 74 kg

DRUGS (5)
  1. CORTISONE [Concomitant]
     Active Substance: CORTISONE
     Indication: DERMATITIS ATOPIC
     Dosage: 3 PERCENT, 1X/DAY
     Route: 061
     Dates: start: 2012
  2. LEVOTHYROXINE. [Concomitant]
     Active Substance: LEVOTHYROXINE
     Indication: HYPOTHYROIDISM
     Dosage: 200 MILLIGRAM, 1X/DAY
     Route: 048
     Dates: start: 2017
  3. ACTIVELLA [Suspect]
     Active Substance: ESTRADIOL\NORETHINDRONE ACETATE
     Indication: ENDOMETRIOSIS
     Dosage: 1 DOSAGE FORM, 1X/DAY
     Route: 048
     Dates: start: 20190130
  4. ELAGOLIX [Suspect]
     Active Substance: ELAGOLIX
     Indication: ENDOMETRIOSIS
     Dosage: 2 DOSAGE FORM, 1 /DAY (400 MG, 200 MG,2 IN 1 D)
     Route: 048
     Dates: start: 20190130
  5. EXCEDRIN [ACETYLSALICYLIC ACID;CAFFEINE;SALICYLAMIDE] [Concomitant]
     Active Substance: ASPIRIN\CAFFEINE\SALICYLAMIDE
     Indication: MIGRAINE
     Dosage: 250/65 AS NEEDED
     Route: 048
     Dates: start: 1986

REACTIONS (1)
  - Migraine [Recovered/Resolved]

NARRATIVE: CASE EVENT DATE: 20190503
